FAERS Safety Report 10176613 (Version 2)
Quarter: 2014Q2

REPORT INFORMATION
  Report Type: Spontaneous
  Country: US (occurrence: US)
  Receive Date: 20140516
  Receipt Date: 20140521
  Transmission Date: 20141212
  Serious: No
  Sender: FDA-Public Use
  Company Number: US-PFIZER INC-2014133274

PATIENT
  Age: 77 Year
  Sex: Female
  Weight: 86.17 kg

DRUGS (3)
  1. DETROL LA [Suspect]
     Indication: URINARY INCONTINENCE
     Dosage: 2 MG, 1X/DAY
     Route: 048
     Dates: start: 20130403
  2. DETROL LA [Suspect]
     Dosage: 4 MG (BY TAKING TWO CAPSULES), 1X/DAY
     Route: 048
     Dates: start: 201312
  3. CRESTOR [Concomitant]
     Indication: BLOOD CHOLESTEROL INCREASED
     Dosage: 20 MG, DAILY

REACTIONS (1)
  - Drug ineffective [Unknown]
